FAERS Safety Report 8777679 (Version 1)
Quarter: 2012Q4

REPORT INFORMATION
  Report Type: 
  Country: US (occurrence: US)
  Receive Date: 20120904
  Receipt Date: 20120904
  Transmission Date: 20130627
  Serious: Yes (Disabling, Other)
  Sender: FDA-Public Use
  Company Number: US-ELI_LILLY_AND_COMPANY-US201208009593

PATIENT
  Age: 63 Year
  Sex: Male

DRUGS (3)
  1. CYMBALTA [Suspect]
     Indication: DEPRESSION
     Dosage: 120 mg, qd
  2. OXYCODONE [Concomitant]
  3. CLONAZEPAM [Concomitant]
     Indication: ANXIETY
     Dosage: 1.5 mg, qd

REACTIONS (7)
  - Shoulder arthroplasty [Unknown]
  - Nightmare [Not Recovered/Not Resolved]
  - Hyperhidrosis [Unknown]
  - Headache [Not Recovered/Not Resolved]
  - Feeling abnormal [Not Recovered/Not Resolved]
  - Arthroscopy [Unknown]
  - Anxiety [Unknown]
